FAERS Safety Report 15674904 (Version 1)
Quarter: 2018Q4

REPORT INFORMATION
  Report Type: Spontaneous
  Country: IT (occurrence: IT)
  Receive Date: 20181130
  Receipt Date: 20181130
  Transmission Date: 20190205
  Serious: Yes (Hospitalization)
  Sender: FDA-Public Use
  Company Number: IT-ASTRAZENECA-2018SF55987

PATIENT
  Age: 58 Year
  Sex: Female

DRUGS (2)
  1. SEROQUEL [Suspect]
     Active Substance: QUETIAPINE FUMARATE
     Route: 048
  2. ALCOVER [Suspect]
     Active Substance: SODIUM OXYBATE
     Indication: ALCOHOLISM
     Dosage: 1.0DF EVERY CYCLE
     Route: 048

REACTIONS (5)
  - Miosis [Recovering/Resolving]
  - Alcohol interaction [Recovering/Resolving]
  - Intentional self-injury [Recovering/Resolving]
  - Coma scale abnormal [Recovering/Resolving]
  - Intentional underdose [Recovering/Resolving]

NARRATIVE: CASE EVENT DATE: 20181116
